FAERS Safety Report 7517155-2 (Version None)
Quarter: 2011Q2

REPORT INFORMATION
  Report Type: 
  Country: None (occurrence: None)
  Receive Date: 20110601
  Receipt Date: 20110527
  Transmission Date: 20111010
  Serious: Yes (Hospitalization)
  Sender: FDA-Public Use
  Company Number: IT-PFIZER INC-2011116291

PATIENT
  Age: 9 Year
  Sex: Male

DRUGS (1)
  1. ZITHROMAX [Suspect]
     Indication: STREPTOCOCCAL INFECTION
     Dosage: 10 MG/KG, DAILY
     Route: 048

REACTIONS (1)
  - RHEUMATIC HEART DISEASE [None]
